FAERS Safety Report 15762929 (Version 2)
Quarter: 2019Q1

REPORT INFORMATION
  Report Type: Spontaneous
  Country: AT (occurrence: AT)
  Receive Date: 20181226
  Receipt Date: 20190117
  Transmission Date: 20190417
  Serious: Yes (Hospitalization, Other)
  Sender: FDA-Public Use
  Company Number: AT-PFIZER INC-2018521806

PATIENT
  Sex: Male

DRUGS (20)
  1. QUETIAPINE FUMARATE. [Suspect]
     Active Substance: QUETIAPINE FUMARATE
     Dosage: 100 MG, UNK
     Route: 048
  2. VALPROIC ACID. [Suspect]
     Active Substance: VALPROIC ACID
     Dosage: 1000 MG, 1X/DAY
  3. RIVASTIGMINE. [Suspect]
     Active Substance: RIVASTIGMINE
     Dosage: UNK (DOSE INCREASED).
     Route: 062
  4. ESCITALOPRAM [Suspect]
     Active Substance: ESCITALOPRAM OXALATE
     Dosage: 3 MG, 1X/DAY
  5. CEREBROLYSIN [Suspect]
     Active Substance: CEREBROLYSIN
     Dosage: UNK
  6. QUETIAPINE FUMARATE. [Suspect]
     Active Substance: QUETIAPINE FUMARATE
     Dosage: SLOWLY INCREASED
     Route: 048
  7. PREGABALIN. [Suspect]
     Active Substance: PREGABALIN
     Dosage: 50 MG, UNK
     Route: 048
  8. PREGABALIN. [Suspect]
     Active Substance: PREGABALIN
     Dosage: 25 MG, 2X/DAY
     Route: 048
  9. LORAZEPAM. [Suspect]
     Active Substance: LORAZEPAM
     Dosage: UNK
  10. PIRACETAM [Suspect]
     Active Substance: PIRACETAM
     Dosage: 1200 MG, UNK
  11. RIVASTIGMINE. [Suspect]
     Active Substance: RIVASTIGMINE
     Dosage: 4.6 MG, 1X/DAY
     Route: 062
  12. QUETIAPINE FUMARATE. [Suspect]
     Active Substance: QUETIAPINE FUMARATE
     Dosage: 25 MG, 1X/DAY,  IN THE EVENING
     Route: 048
  13. ESCITALOPRAM [Suspect]
     Active Substance: ESCITALOPRAM OXALATE
     Indication: EUPHORIC MOOD
     Dosage: 10 MG, UNK
  14. NALTREXONE [Suspect]
     Active Substance: NALTREXONE
     Dosage: UNK
  15. RISPERIDONE. [Suspect]
     Active Substance: RISPERIDONE
     Dosage: 1 MG, UNK
  16. RISPERDAL [Suspect]
     Active Substance: RISPERIDONE
     Dosage: UNK
  17. RISPERIDONE. [Suspect]
     Active Substance: RISPERIDONE
     Dosage: 3 MG, 1X/DAY
  18. RISPERIDONE. [Suspect]
     Active Substance: RISPERIDONE
     Dosage: UNK
  19. OXAZEPAM. [Suspect]
     Active Substance: OXAZEPAM
     Dosage: UNK
  20. MIRTAZAPINE. [Suspect]
     Active Substance: MIRTAZAPINE
     Indication: INSOMNIA
     Dosage: 15 MG, UNK

REACTIONS (22)
  - Dementia with Lewy bodies [Unknown]
  - Drug ineffective [Unknown]
  - Tremor [Unknown]
  - Depression [Unknown]
  - Insomnia [Unknown]
  - Agitation [Unknown]
  - Sleep disorder [Unknown]
  - Muscle rigidity [Unknown]
  - Alcoholism [Unknown]
  - Cognitive disorder [Unknown]
  - Apraxia [Unknown]
  - Parkinsonism [Unknown]
  - Mania [Unknown]
  - Dysphoria [Unknown]
  - Korsakoff^s syndrome [Unknown]
  - Restlessness [Unknown]
  - Hallucination [Not Recovered/Not Resolved]
  - Aggression [Unknown]
  - Dementia [Unknown]
  - Urinary incontinence [Unknown]
  - Hallucination, visual [Not Recovered/Not Resolved]
  - Abnormal behaviour [Unknown]

NARRATIVE: CASE EVENT DATE: 2018
